FAERS Safety Report 11147775 (Version 1)
Quarter: 2015Q2

REPORT INFORMATION
  Report Type: Spontaneous
  Country: BR (occurrence: BR)
  Receive Date: 20150529
  Receipt Date: 20150529
  Transmission Date: 20150821
  Serious: Yes (Death, Hospitalization)
  Sender: FDA-Public Use
  Company Number: BR-ACCORD-030848

PATIENT
  Age: 63 Year
  Sex: Male
  Weight: 78 kg

DRUGS (21)
  1. MORPHINE [Concomitant]
     Active Substance: MORPHINE
     Dosage: STRENGTH: 1 MG/ML (2 ML AMPOULE).
     Route: 042
     Dates: start: 20150327, end: 20150327
  2. NO DRUG NAME [Suspect]
     Active Substance: UNSPECIFIED INGREDIENT
     Indication: PRODUCT USED FOR UNKNOWN INDICATION
     Route: 042
     Dates: start: 20150327, end: 20150327
  3. HALOPERIDOL. [Concomitant]
     Active Substance: HALOPERIDOL
     Dosage: STRENGTH: 5 MG/ML (1 ML AMPOULE)
     Route: 042
     Dates: start: 20150327, end: 20150327
  4. DEXAMETHASONE. [Concomitant]
     Active Substance: DEXAMETHASONE
     Dosage: DEXAMETHASONE 4 MG/ML (2.5 ML AMPOULE)
     Route: 042
     Dates: start: 20150327, end: 20150327
  5. HYOSCINE [Concomitant]
     Active Substance: SCOPOLAMINE
     Dosage: STRENGTH: 20 MG/ML (1 ML AMPOULE)
     Dates: start: 20150327, end: 20150327
  6. OMEPRAZOLE. [Concomitant]
     Active Substance: OMEPRAZOLE
     Dosage: AT MORNING, AMPOULE
     Route: 042
     Dates: start: 20150327, end: 20150327
  7. ONDANSETRON [Concomitant]
     Active Substance: ONDANSETRON
     Dosage: ONDANSETRON 2 MG/ML (4 ML AMPOULE)
     Route: 042
     Dates: start: 20150327, end: 20150327
  8. IRINOTECAN [Suspect]
     Active Substance: IRINOTECAN
     Indication: PANCREATIC CARCINOMA METASTATIC
     Dates: start: 20150327, end: 20150327
  9. DEXAMETHASONE. [Concomitant]
     Active Substance: DEXAMETHASONE
     Route: 042
  10. HYDROCORTISONE. [Concomitant]
     Active Substance: HYDROCORTISONE
     Dosage: 1 SQUIRT?STRENGTH: 1% (SQUIRT OF 20 G)
     Route: 061
     Dates: start: 20150327, end: 20150327
  11. OCTREOTIDE/OCTREOTIDE ACETATE [Concomitant]
     Dosage: STRENGTH: 0.1 MG/ML (1 ML AMPULE)
     Route: 042
     Dates: start: 20150327, end: 20150327
  12. ONDANSETRON [Concomitant]
     Active Substance: ONDANSETRON
     Route: 042
  13. GLYCEROL/THYMOL [Concomitant]
     Dosage: STRENGTH: 12% PROBE (500 ML BOTTLE)
     Dates: start: 20150327, end: 20150327
  14. ENOXAPARIN [Concomitant]
     Active Substance: ENOXAPARIN
     Dosage: STRENGTH: (0.4 ML SYRINGE)
     Route: 058
     Dates: start: 20150327, end: 20150327
  15. NO DRUG NAME [Concomitant]
     Route: 042
     Dates: start: 20150327
  16. FLUOROURACIL. [Concomitant]
     Active Substance: FLUOROURACIL
     Dosage: FLUOROURACIL 10 MINUTES
     Route: 042
     Dates: start: 20150327
  17. ATROPINE [Concomitant]
     Active Substance: ATROPINE
     Route: 042
  18. DRAMAMINE [Concomitant]
     Active Substance: DIMENHYDRINATE
     Dosage: DIMENHYDRINATE 30 MG, VITAMIN B6 50 MG, GLUCOSE 1 G, FRUCTOSE, 1G 8 IN 8 HOURS
     Route: 042
     Dates: start: 20150327, end: 20150327
  19. MORPHINE [Concomitant]
     Active Substance: MORPHINE
     Dosage: STRENGTH: 1 MG/ML (2 ML AMPOULE). ALSO RECEIVED 2 MG 2 IN 2 HOURS
     Route: 042
     Dates: start: 20150327, end: 20150327
  20. SODIUM DIPYRONE [Concomitant]
     Dosage: STRENGTH: 500 MG/ML (2 ML AMPOULE)
     Dates: start: 20150327, end: 20150327
  21. FLUOROURACIL. [Concomitant]
     Active Substance: FLUOROURACIL
     Dosage: FLUOROURACIL 46 HOURS
     Route: 042
     Dates: start: 20150327

REACTIONS (3)
  - Tachycardia [Recovered/Resolved]
  - Nausea [Recovered/Resolved]
  - Pseudomonas infection [Unknown]

NARRATIVE: CASE EVENT DATE: 20150327
